FAERS Safety Report 7933280-6 (Version None)
Quarter: 2011Q4

REPORT INFORMATION
  Report Type: 
  Country: None (occurrence: None)
  Receive Date: 20111122
  Receipt Date: 20111114
  Transmission Date: 20120403
  Serious: Yes (Other)
  Sender: FDA-Public Use
  Company Number: US-PERRIGO-11US010031

PATIENT
  Sex: Male
  Weight: 81.633 kg

DRUGS (2)
  1. NEOMYCIN SULFATE [Suspect]
     Indication: SKIN LESION
     Dosage: ONE SMALL DAB, ONCE
     Route: 061
     Dates: start: 20111104, end: 20111104
  2. DORZOLAMIDE HCL AND TIMOLOL MALEATE [Concomitant]
     Indication: GLAUCOMA
     Dosage: 1 GTT, BID
     Route: 047

REACTIONS (4)
  - ERYTHEMA [None]
  - ANAPHYLACTIC REACTION [None]
  - URTICARIA [None]
  - THROAT IRRITATION [None]
